FAERS Safety Report 9447397 (Version 2)
Quarter: 2013Q3

REPORT INFORMATION
  Report Type: Report from Study
  Country: JP (occurrence: JP)
  Receive Date: 20130808
  Receipt Date: 20130829
  Transmission Date: 20140515
  Serious: Yes (Death, Hospitalization)
  Sender: FDA-Public Use
  Company Number: JP-PFIZER INC-2013182554

PATIENT
  Age: 61 Year
  Sex: Female
  Weight: 44.1 kg

DRUGS (13)
  1. SUTENT [Suspect]
     Indication: PANCREATIC NEUROENDOCRINE TUMOUR
     Dosage: 37.5 MG, 1X/DAY
     Dates: start: 20121116, end: 20121129
  2. OXYCONTIN [Concomitant]
     Dosage: UNK
     Route: 048
  3. LOXOPROFEN [Concomitant]
     Dosage: UNK
     Route: 048
  4. NOVAMIN [Concomitant]
     Dosage: UNK
     Route: 048
     Dates: end: 20121122
  5. MAG-LAX [Concomitant]
     Dosage: UNK
     Route: 048
  6. EURODIN [Concomitant]
     Dosage: UNK
     Route: 048
  7. HIRNAMIN [Concomitant]
     Dosage: UNK
     Route: 048
  8. DEPAS [Concomitant]
     Dosage: UNK
     Route: 048
  9. DOGMATYL [Concomitant]
     Dosage: UNK
     Route: 048
     Dates: end: 20121126
  10. GASMOTIN [Concomitant]
     Route: 048
  11. WARFARIN [Concomitant]
     Dosage: UNK
     Route: 048
  12. ZOPICLONE [Concomitant]
     Dosage: UNK
     Route: 048
  13. RIVOTRIL [Concomitant]
     Dosage: UNK
     Route: 048

REACTIONS (3)
  - Disease progression [Fatal]
  - Pancreatic neuroendocrine tumour [Fatal]
  - Platelet count decreased [Not Recovered/Not Resolved]
